FAERS Safety Report 7349107-X (Version None)
Quarter: 2011Q1

REPORT INFORMATION
  Report Type: 
  Country: None (occurrence: None)
  Receive Date: 20110314
  Receipt Date: 20110303
  Transmission Date: 20110831
  Serious: Yes (Life-Threatening, Hospitalization, Other)
  Sender: FDA-Public Use
  Company Number: US-CELGENEUS-163-21880-11021492

PATIENT
  Sex: Male

DRUGS (8)
  1. REVLIMID [Suspect]
     Indication: MYELODYSPLASTIC SYNDROME
     Dosage: 5 MILLIGRAM
     Route: 048
     Dates: start: 20101217, end: 20110210
  2. PROSCAR [Concomitant]
     Route: 065
  3. FLAGYL [Concomitant]
     Route: 065
  4. LEVAQUIN [Concomitant]
     Route: 065
  5. PREDNISOLONE [Concomitant]
     Route: 065
  6. ATROPINE OPHTHALMIC [Concomitant]
     Route: 065
  7. BRIMONIDINE [Concomitant]
     Route: 065
  8. DIOVAN [Concomitant]
     Route: 065

REACTIONS (1)
  - CLOSTRIDIUM DIFFICILE SEPSIS [None]
